FAERS Safety Report 4804443-3 (Version None)
Quarter: 2005Q4

REPORT INFORMATION
  Report Type: 
  Country: None (occurrence: None)
  Receive Date: 20051020
  Receipt Date: 20051013
  Transmission Date: 20060501
  Serious: Yes (Hospitalization)
  Sender: FDA-Public Use
  Company Number: FR-GLAXOSMITHKLINE-B0397574A

PATIENT
  Age: 25 Year
  Sex: Female
  Weight: 47 kg

DRUGS (4)
  1. MALARONE [Suspect]
     Indication: PLASMODIUM FALCIPARUM INFECTION
     Dosage: 4TAB PER DAY
     Route: 048
     Dates: start: 20050903, end: 20050904
  2. PRIMPERAN INJ [Concomitant]
     Indication: VOMITING
     Route: 048
     Dates: start: 20050903
  3. DAFALGAN [Concomitant]
     Dosage: 1000MG AS REQUIRED
     Route: 048
     Dates: start: 20050903
  4. TRAMADOL HCL [Concomitant]
     Dosage: 200MG PER DAY
     Route: 048
     Dates: start: 20050903

REACTIONS (4)
  - CARDIAC MURMUR [None]
  - GENERAL PHYSICAL HEALTH DETERIORATION [None]
  - NAUSEA [None]
  - VOMITING [None]
